FAERS Safety Report 5278858-6 (Version None)
Quarter: 2007Q1

REPORT INFORMATION
  Report Type: 
  Country: None (occurrence: None)
  Receive Date: 20070321
  Receipt Date: 20070308
  Transmission Date: 20070707
  Serious: Yes (Hospitalization)
  Sender: FDA-Public Use
  Company Number: 230166K07CAN

PATIENT
  Sex: Female

DRUGS (2)
  1. REBIF [Suspect]
     Indication: MULTIPLE SCLEROSIS
     Dosage: 44 MCG, 3 IN 1 WEEKS
     Dates: start: 20050829, end: 20060804
  2. ANTIBIOTICS [Concomitant]

REACTIONS (3)
  - MUSCLE SPASMS [None]
  - SEPSIS [None]
  - THYROID DISORDER [None]
